FAERS Safety Report 8036541-8 (Version None)
Quarter: 2012Q1

REPORT INFORMATION
  Report Type: 
  Country: None (occurrence: None)
  Receive Date: 20120111
  Receipt Date: 20120106
  Transmission Date: 20120608
  Serious: Yes (Other)
  Sender: FDA-Public Use
  Company Number: CH-PFIZER INC-2011289341

PATIENT
  Age: 33 Year
  Sex: Female

DRUGS (4)
  1. LYRICA [Suspect]
     Indication: GENERALISED ANXIETY DISORDER
     Dosage: 25 MG, 2X/DAY
     Route: 048
     Dates: start: 20111126, end: 20111129
  2. SEROQUEL [Concomitant]
     Dosage: 200 MG, 1X/DAY
     Route: 048
     Dates: start: 20101105
  3. TRAZODONE HCL [Concomitant]
     Dosage: 50 MG, 1X/DAY
     Route: 048
     Dates: start: 20110419
  4. SERTRALINE [Concomitant]
     Dosage: 100 MG, 1X/DAY
     Route: 048
     Dates: start: 20110121

REACTIONS (3)
  - VOMITING [None]
  - NAUSEA [None]
  - GASTROENTERITIS NOROVIRUS [None]
